FAERS Safety Report 8797869 (Version 1)
Quarter: 2012Q4

REPORT INFORMATION
  Report Type: Spontaneous
  Country: US (occurrence: None)
  Receive Date: 20120914
  Receipt Date: 20120914
  Transmission Date: 20130627
  Serious: Yes (Other)
  Sender: FDA-Public Use
  Company Number: 2012-003295

PATIENT
  Age: 85 Year
  Sex: Female

DRUGS (3)
  1. ESTRACE [Suspect]
     Indication: VAGINAL DRYNESS
     Dosage: small amount 2-3 times per week
     Route: 067
     Dates: start: 20120501, end: 201208
  2. AMLODIPINE [Concomitant]
  3. LEVOTHYROXINE [Concomitant]

REACTIONS (6)
  - Breast cyst [None]
  - Papilloma [None]
  - Nipple exudate bloody [None]
  - Vulvovaginal burning sensation [None]
  - Chest pain [None]
  - Pain in extremity [None]
